FAERS Safety Report 8581180-3 (Version None)
Quarter: 2012Q3

REPORT INFORMATION
  Report Type: 
  Country: None (occurrence: None)
  Receive Date: 20120809
  Receipt Date: 20120731
  Transmission Date: 20120928
  Serious: Yes (Hospitalization)
  Sender: FDA-Public Use
  Company Number: US-BAYER-2012-046263

PATIENT
  Age: 36 Year
  Sex: Female

DRUGS (5)
  1. YASMIN [Suspect]
  2. YAZ [Suspect]
  3. AYGESTIN [Concomitant]
     Indication: DYSFUNCTIONAL UTERINE BLEEDING
     Dosage: UNK
  4. ZOLOFT [Concomitant]
     Dosage: 50 MG, PER DAY
     Route: 048
  5. VIOXX [Concomitant]

REACTIONS (7)
  - QUALITY OF LIFE DECREASED [None]
  - ANHEDONIA [None]
  - FEAR [None]
  - ANXIETY [None]
  - DEEP VEIN THROMBOSIS [None]
  - INJURY [None]
  - PAIN [None]
